FAERS Safety Report 12582443 (Version 1)
Quarter: 2016Q3

REPORT INFORMATION
  Report Type: Spontaneous
  Country: US (occurrence: None)
  Receive Date: 20160721
  Receipt Date: 20160721
  Transmission Date: 20161109
  Serious: Yes (Life-Threatening)
  Sender: FDA-Public Use
  Company Number: None

PATIENT
  Age: 71 Year
  Sex: Female
  Weight: 52.35 kg

DRUGS (10)
  1. VALACICLOVIR [Concomitant]
     Active Substance: VALACYCLOVIR HYDROCHLORIDE
  2. OMEGA 3 [Concomitant]
     Active Substance: OMEGA-3 FATTY ACIDS
  3. MULTIVITAMINS [Concomitant]
     Active Substance: VITAMINS
  4. L TYROSINE [Concomitant]
  5. VITAMIN C [Concomitant]
     Active Substance: ASCORBIC ACID
  6. GINGO BILOBA [Concomitant]
  7. LASTACAFT [Suspect]
     Active Substance: ALCAFTADINE
     Indication: EYE PRURITUS
     Dosage: 2.5 MG/ML 1 DROP IN EACH EYE, ONCE DAILY, DROPS IN EYES
     Route: 047
     Dates: start: 20160605, end: 20160608
  8. CALCIUM WITH D3 AND MG [Concomitant]
  9. BETA CAROTENE [Concomitant]
  10. GLUCOSAMINE AND CHONDROITIN [Concomitant]
     Active Substance: CHONDROITIN SULFATE (BOVINE)\GLUCOSAMINE HYDROCHLORIDE

REACTIONS (5)
  - Irritability [None]
  - Fungal infection [None]
  - Somnambulism [None]
  - Depression [None]
  - Somnolence [None]

NARRATIVE: CASE EVENT DATE: 2016
